FAERS Safety Report 11185820 (Version 1)
Quarter: 2015Q2

REPORT INFORMATION
  Report Type: Spontaneous
  Country: US (occurrence: US)
  Receive Date: 20150612
  Receipt Date: 20150612
  Transmission Date: 20150821
  Serious: No
  Sender: FDA-Public Use
  Company Number: US-GLAXOSMITHKLINE-US2015082025

PATIENT
  Age: 11 Year
  Sex: Male

DRUGS (4)
  1. DELSYM [Concomitant]
     Active Substance: DEXTROMETHORPHAN
  2. FLOVENT DISKUS [Suspect]
     Active Substance: FLUTICASONE PROPIONATE
     Indication: WHEEZING
     Dosage: 2 PUFF(S), BID
     Route: 055
  3. VITAMIN C [Concomitant]
     Active Substance: ASCORBIC ACID
  4. ALBUTEROL INHALER [Concomitant]
     Active Substance: ALBUTEROL

REACTIONS (3)
  - Psychomotor hyperactivity [Unknown]
  - Anger [Unknown]
  - Device use error [Unknown]

NARRATIVE: CASE EVENT DATE: 20150610
